FAERS Safety Report 25891486 (Version 3)
Quarter: 2025Q4

REPORT INFORMATION
  Report Type: Spontaneous
  Country: US (occurrence: None)
  Receive Date: 20251007
  Receipt Date: 20251106
  Transmission Date: 20260117
  Serious: Yes (Other)
  Sender: AMERICAN REGENT
  Company Number: US-AMERICAN REGENT INC-2025003701

PATIENT
  Age: 48 Year
  Sex: Female

DRUGS (1)
  1. VENOFER [Suspect]
     Active Substance: IRON SUCROSE
     Indication: Product used for unknown indication
     Dosage: 300 MILLIGRAM IN 250 ML NORMAL SALINE OVER 90 MIN
     Dates: start: 202509, end: 202509

REACTIONS (8)
  - Throat irritation [Unknown]
  - Paraesthesia [Unknown]
  - Pruritus [Unknown]
  - Erythema [Unknown]
  - Flushing [Unknown]
  - Infusion related reaction [Unknown]
  - Product quality issue [Unknown]
  - Product quality issue [Unknown]

NARRATIVE: CASE EVENT DATE: 20250901
